FAERS Safety Report 24609017 (Version 2)
Quarter: 2024Q4

REPORT INFORMATION
  Report Type: Spontaneous
  Country: US (occurrence: US)
  Receive Date: 20241112
  Receipt Date: 20241114
  Transmission Date: 20250114
  Serious: No
  Sender: PFIZER
  Company Number: US-PFIZER INC-202400297592

PATIENT
  Age: 49 Year
  Sex: Female

DRUGS (2)
  1. VELSIPITY [Interacting]
     Active Substance: ETRASIMOD ARGININE
     Dosage: 2 MG, DAILY
  2. LEXAPRO [Interacting]
     Active Substance: ESCITALOPRAM OXALATE

REACTIONS (2)
  - Hypersensitivity [Unknown]
  - Drug interaction [Unknown]
